FAERS Safety Report 9205752 (Version 1)
Quarter: 2013Q1

REPORT INFORMATION
  Report Type: Spontaneous
  Country: US (occurrence: None)
  Receive Date: 20120709
  Receipt Date: 20120709
  Transmission Date: 20140127
  Serious: Yes (Other)
  Sender: FDA-Public Use
  Company Number: PHEH2012US009475

PATIENT
  Age: 68 Year
  Sex: Female

DRUGS (2)
  1. GLEEVEC (IMATINIB) [Suspect]
     Indication: CHRONIC MYELOID LEUKAEMIA
     Route: 048
     Dates: start: 20070815
  2. ADVIL (MEFENAMIC ACID) [Concomitant]

REACTIONS (4)
  - Gastric ulcer [None]
  - Hepatic enzyme increased [None]
  - Haematemesis [None]
  - Abdominal pain upper [None]
